FAERS Safety Report 17698295 (Version 1)
Quarter: 2020Q2

REPORT INFORMATION
  Report Type: Spontaneous
  Country: US (occurrence: US)
  Receive Date: 20200423
  Receipt Date: 20200423
  Transmission Date: 20200714
  Serious: No
  Sender: FDA-Public Use
  Company Number: US-PFIZER INC-2020159129

PATIENT
  Age: 64 Year
  Sex: Male

DRUGS (5)
  1. MINERAL OIL. [Concomitant]
     Active Substance: MINERAL OIL
     Dosage: UNK
  2. ROSUVASTATIN CALCIUM. [Concomitant]
     Active Substance: ROSUVASTATIN CALCIUM
     Dosage: 10 MG, UNK
  3. METHOTREXATE SODIUM. [Suspect]
     Active Substance: METHOTREXATE SODIUM
     Dosage: 2.5 MG, UNK
  4. CURCUMIN [Concomitant]
     Active Substance: CURCUMIN
     Dosage: UNK
  5. COQ10 COMPLEX [Concomitant]
     Dosage: 50 MG, UNK

REACTIONS (3)
  - Alanine aminotransferase abnormal [Unknown]
  - Creatinine renal clearance decreased [Unknown]
  - Hepatic enzyme increased [Unknown]
